FAERS Safety Report 13543724 (Version 1)
Quarter: 2017Q2

REPORT INFORMATION
  Report Type: Spontaneous
  Country: GB (occurrence: GB)
  Receive Date: 20170515
  Receipt Date: 20170515
  Transmission Date: 20170830
  Serious: Yes (Disabling, Other)
  Sender: FDA-Public Use
  Company Number: GB-CONCORDIA PHARMACEUTICALS INC.-GSH201705-002792

PATIENT
  Age: 74 Year
  Sex: Male

DRUGS (14)
  1. PREDNISOLONE. [Suspect]
     Active Substance: PREDNISOLONE
     Indication: SARCOIDOSIS
     Route: 048
     Dates: start: 20170405
  2. ATORVASTATIN [Concomitant]
     Active Substance: ATORVASTATIN
  3. LANSOPRAZOLE. [Concomitant]
     Active Substance: LANSOPRAZOLE
  4. PREDNISOLONE. [Suspect]
     Active Substance: PREDNISOLONE
     Indication: SARCOIDOSIS
     Route: 048
  5. RANITIDINE. [Concomitant]
     Active Substance: RANITIDINE
  6. COCODAMOL [Concomitant]
     Active Substance: ACETAMINOPHEN\CODEINE PHOSPHATE
     Dosage: 1 OR 2 UP TO 4 TIMES A DAY(30MG/500MG).
  7. ERYTHROMYCIN. [Concomitant]
     Active Substance: ERYTHROMYCIN
  8. PREDNISOLONE. [Suspect]
     Active Substance: PREDNISOLONE
     Indication: SARCOIDOSIS
     Route: 048
  9. CITALOPRAM [Concomitant]
     Active Substance: CITALOPRAM HYDROBROMIDE
  10. GLICLAZIDE [Concomitant]
     Active Substance: GLICLAZIDE
  11. ALZAIN [Concomitant]
  12. MIRTAZAPINE. [Concomitant]
     Active Substance: MIRTAZAPINE
  13. GLYCERYL TRINITRATE [Concomitant]
     Active Substance: NITROGLYCERIN
     Route: 060
  14. ZOPICLONE [Concomitant]
     Active Substance: ZOPICLONE
     Dosage: AT NIGHT.

REACTIONS (2)
  - Asthenia [Not Recovered/Not Resolved]
  - Increased appetite [Not Recovered/Not Resolved]
